FAERS Safety Report 10178007 (Version 1)
Quarter: 2014Q2

REPORT INFORMATION
  Report Type: Spontaneous
  Country: CA (occurrence: CA)
  Receive Date: 20140517
  Receipt Date: 20140517
  Transmission Date: 20141212
  Serious: Yes (Hospitalization)
  Sender: FDA-Public Use
  Company Number: CA-ROCHE-1401571

PATIENT
  Age: 63 Year
  Sex: Female

DRUGS (9)
  1. RITUXAN [Suspect]
     Indication: PRODUCT USED FOR UNKNOWN INDICATION
     Route: 065
  2. CELLCEPT [Suspect]
     Indication: PRODUCT USED FOR UNKNOWN INDICATION
     Route: 065
  3. DIDROCAL [Suspect]
     Indication: PRODUCT USED FOR UNKNOWN INDICATION
     Route: 048
  4. ACETAMINOPHEN [Concomitant]
     Route: 065
  5. ATORVASTATIN CALCIUM [Concomitant]
  6. CHOLECALCIFEROL [Concomitant]
     Route: 065
  7. CORTEF [Concomitant]
     Route: 065
  8. METFORMIN [Concomitant]
     Route: 065
  9. NORVASC [Concomitant]

REACTIONS (2)
  - Adrenal neoplasm [Unknown]
  - Drug ineffective [Unknown]
